FAERS Safety Report 9229887 (Version 1)
Quarter: 2013Q2

REPORT INFORMATION
  Report Type: Spontaneous
  Country: US (occurrence: None)
  Receive Date: 20130412
  Receipt Date: 20130412
  Transmission Date: 20140414
  Serious: Yes (Life-Threatening, Hospitalization)
  Sender: FDA-Public Use
  Company Number: None

PATIENT
  Age: 28 Year
  Sex: Female
  Weight: 56.7 kg

DRUGS (1)
  1. MIRENA IUD [Suspect]

REACTIONS (5)
  - Procedural pain [None]
  - Musculoskeletal pain [None]
  - Device dislocation [None]
  - Device dislocation [None]
  - Scar [None]
